FAERS Safety Report 9757565 (Version 1)
Quarter: 2013Q4

REPORT INFORMATION
  Report Type: Spontaneous
  Country: US (occurrence: US)
  Receive Date: 20131216
  Receipt Date: 20131216
  Transmission Date: 20140711
  Serious: Yes (Other)
  Sender: FDA-Public Use
  Company Number: US-009507513-1312USA004802

PATIENT
  Age: 59 Year
  Sex: Female
  Weight: 103.86 kg

DRUGS (7)
  1. ZETIA [Suspect]
  2. JUXTAPID [Suspect]
     Indication: TYPE IIA HYPERLIPIDAEMIA
     Dosage: 5 MG, QD
     Route: 048
     Dates: start: 201309, end: 20131111
  3. LASIX (FUROSEMIDE) [Concomitant]
  4. COREG [Concomitant]
  5. POTASSIUM CHLORIDE - USP [Concomitant]
  6. BENICAR [Concomitant]
  7. PLAVIX [Concomitant]

REACTIONS (1)
  - Hepatic enzyme increased [Not Recovered/Not Resolved]
